FAERS Safety Report 15227461 (Version 1)
Quarter: 2018Q3

REPORT INFORMATION
  Report Type: Spontaneous
  Country: US (occurrence: US)
  Receive Date: 20180801
  Receipt Date: 20180801
  Transmission Date: 20181010
  Serious: Yes (Disabling, Other)
  Sender: FDA-Public Use
  Company Number: US-PFIZER INC-2018304037

PATIENT
  Age: 67 Year
  Sex: Female

DRUGS (1)
  1. NEURONTIN [Suspect]
     Active Substance: GABAPENTIN
     Indication: NEURALGIA

REACTIONS (3)
  - Drug ineffective for unapproved indication [Unknown]
  - Limb discomfort [Unknown]
  - Dementia Alzheimer^s type [Unknown]
